FAERS Safety Report 6557838-4 (Version None)
Quarter: 2010Q1

REPORT INFORMATION
  Report Type: 
  Country: None (occurrence: None)
  Receive Date: 20100128
  Receipt Date: 20100128
  Transmission Date: 20100710
  Serious: Yes (Death)
  Sender: FDA-Public Use
  Company Number: None

PATIENT
  Age: 59 Year
  Sex: Male
  Weight: 79.1 kg

DRUGS (4)
  1. LEUPROLIDE ACETATE [Suspect]
     Indication: PROSTATE CANCER
     Dosage: 22.5 MILLIGRAM(S) ;EVERY 3 MONTHS;SUBCUTANEOUS
     Route: 058
     Dates: start: 20090901, end: 20090901
  2. CASODEX [Suspect]
     Indication: PROSTATE CANCER
     Dosage: 50 MILLIGRAM(S) ;DAILY; ORAL
     Route: 048
     Dates: start: 20090610, end: 20090710
  3. TETRACYCLINE HYDROCHLORIDE [Concomitant]
  4. MEGESTROL ACETATE [Concomitant]

REACTIONS (4)
  - CARDIAC ARREST [None]
  - INCOHERENT [None]
  - UNRESPONSIVE TO STIMULI [None]
  - VENTRICULAR FIBRILLATION [None]
